FAERS Safety Report 4722286-6 (Version None)
Quarter: 2005Q3

REPORT INFORMATION
  Report Type: 
  Country: None (occurrence: None)
  Receive Date: 20050722
  Receipt Date: 20041008
  Transmission Date: 20060218
  Serious: No
  Sender: FDA-Public Use
  Company Number: US-GLAXOSMITHKLINE-A0529109A

PATIENT
  Age: 68 Year
  Sex: Male

DRUGS (4)
  1. AVANDIA [Suspect]
     Dosage: 8MG PER DAY
     Route: 048
     Dates: start: 20041007
  2. METFORMIN [Concomitant]
  3. GLUCOPHAGE [Concomitant]
  4. COZAAR [Concomitant]

REACTIONS (3)
  - FLUSHING [None]
  - HEADACHE [None]
  - HYPERTENSION [None]
